FAERS Safety Report 4280068-6 (Version None)
Quarter: 2004Q1

REPORT INFORMATION
  Report Type: 
  Country: None (occurrence: None)
  Receive Date: 20040126
  Receipt Date: 20040115
  Transmission Date: 20041129
  Serious: Yes (Hospitalization)
  Sender: FDA-Public Use
  Company Number: 200410194FR

PATIENT
  Age: 68 Year
  Sex: Female

DRUGS (12)
  1. FUROSEMIDE [Suspect]
     Indication: ISCHAEMIC CARDIOMYOPATHY
     Dosage: 40 MG/DAY PO
     Route: 048
     Dates: end: 20031007
  2. PROZAC [Suspect]
     Indication: DYSTHYMIC DISORDER
     Dosage: 1 U/DAY PO
     Route: 048
     Dates: end: 20031007
  3. ZOPICLONE (IMOVANE) [Concomitant]
  4. TRAMADOL HYDROCHLORIDE [Concomitant]
  5. HALOPERIDOL (HALDOL FAIBLE SOLUTION BUVABLE A [Concomitant]
  6. FERROUS FUMARATE (FUMAFER) [Concomitant]
  7. OMEPRAZOLE [Concomitant]
  8. XANAX [Concomitant]
  9. SIMVASTATIN [Concomitant]
  10. PLAVIX [Concomitant]
  11. CORDARONE [Concomitant]
  12. POTASSIUM CHLORIDE [Concomitant]

REACTIONS (7)
  - ANAEMIA [None]
  - DRUG INTERACTION [None]
  - FALL [None]
  - HYPONATRAEMIA [None]
  - INFLAMMATION [None]
  - PYREXIA [None]
  - URINARY TRACT INFECTION [None]
